FAERS Safety Report 17938589 (Version 2)
Quarter: 2020Q3

REPORT INFORMATION
  Report Type: Spontaneous
  Country: PT (occurrence: PT)
  Receive Date: 20200625
  Receipt Date: 20200706
  Transmission Date: 20201103
  Serious: Yes (Hospitalization, Other)
  Sender: FDA-Public Use
  Company Number: PT-AUROBINDO-AUR-APL-2020-030182

PATIENT
  Age: 73 Year
  Sex: Female

DRUGS (6)
  1. IBUPROFEN. [Suspect]
     Active Substance: IBUPROFEN
     Indication: OSTEOARTHRITIS
     Dosage: UNK
     Route: 065
  2. LOSARTAN. [Concomitant]
     Active Substance: LOSARTAN
     Indication: HYPERTENSION
     Dosage: UNK
     Route: 065
  3. AMISULPRIDE [Concomitant]
     Active Substance: AMISULPRIDE
     Indication: PRODUCT USED FOR UNKNOWN INDICATION
     Dosage: UNK
     Route: 065
  4. PAROXETINE. [Concomitant]
     Active Substance: PAROXETINE
     Indication: PRODUCT USED FOR UNKNOWN INDICATION
     Dosage: UNK
     Route: 065
  5. HYDROCHLOROTHIAZIDE. [Suspect]
     Active Substance: HYDROCHLOROTHIAZIDE
     Indication: HYPERTENSION
     Dosage: UNK
     Route: 065
  6. NIMESULIDE [Concomitant]
     Active Substance: NIMESULIDE
     Indication: OSTEOARTHRITIS
     Dosage: UNK
     Route: 065

REACTIONS (12)
  - Decreased appetite [Unknown]
  - Morning sickness [Unknown]
  - Asthenia [Unknown]
  - Nausea [Unknown]
  - Leukoencephalopathy [Unknown]
  - Renal failure [Recovered/Resolved]
  - Proteinuria [Unknown]
  - Normochromic normocytic anaemia [Unknown]
  - Tubulointerstitial nephritis [Recovered/Resolved]
  - Hypoxic-ischaemic encephalopathy [Unknown]
  - Weight decreased [Unknown]
  - Somnolence [Unknown]
